FAERS Safety Report 5470315-7 (Version None)
Quarter: 2007Q3

REPORT INFORMATION
  Report Type: 
  Country: None (occurrence: None)
  Receive Date: 20070925
  Receipt Date: 20070910
  Transmission Date: 20080115
  Serious: Yes (Life-Threatening, Hospitalization, Other)
  Sender: FDA-Public Use
  Company Number: WAES 01111459

PATIENT
  Age: 54 Year
  Sex: Male

DRUGS (12)
  1. CRIXIVAN [Suspect]
     Indication: HIV INFECTION
     Dosage: 1.6 GM/DAILY PO; 800 MG/DAILY PO
     Route: 048
     Dates: start: 20000719, end: 20000830
  2. CRIXIVAN [Suspect]
     Indication: HIV INFECTION
     Dosage: 1.6 GM/DAILY PO; 800 MG/DAILY PO
     Route: 048
     Dates: start: 20000904, end: 20000912
  3. CRIXIVAN [Suspect]
     Indication: HIV INFECTION
     Dosage: 1.6 GM/DAILY PO; 800 MG/DAILY PO
     Route: 048
     Dates: start: 20000913, end: 20001015
  4. BENAMBAX [Concomitant]
  5. RETROVIR [Concomitant]
  6. [THERAPY UNSPECIFIED] [Concomitant]
  7. ATOVAQUONE [Concomitant]
  8. LAMIVUDINE [Concomitant]
  9. NELFINAVIR MESYLATE [Concomitant]
  10. PENTAZOCINE HCL [Concomitant]
  11. RITONAVIR [Concomitant]
  12. STAVUDINE [Concomitant]

REACTIONS (8)
  - AMNESIA [None]
  - ENCEPHALOPATHY [None]
  - LYMPHOMA [None]
  - NEPHRITIS INTERSTITIAL [None]
  - NEPHROLITHIASIS [None]
  - OEDEMA PERIPHERAL [None]
  - PANCYTOPENIA [None]
  - PNEUMOCYSTIS JIROVECI PNEUMONIA [None]
